FAERS Safety Report 10359017 (Version 1)
Quarter: 2014Q3

REPORT INFORMATION
  Report Type: Report from Study
  Country: US (occurrence: US)
  Receive Date: 20140804
  Receipt Date: 20140804
  Transmission Date: 20150326
  Serious: Yes (Hospitalization)
  Sender: FDA-Public Use
  Company Number: US-BIOGENIDEC-2014BI076460

PATIENT
  Age: 76 Year
  Sex: Female

DRUGS (1)
  1. TECFIDERA [Suspect]
     Active Substance: DIMETHYL FUMARATE
     Indication: MULTIPLE SCLEROSIS
     Route: 048
     Dates: start: 20140429, end: 20140710

REACTIONS (2)
  - Blood pressure abnormal [Unknown]
  - Speech disorder [Unknown]

NARRATIVE: CASE EVENT DATE: 20140710
